FAERS Safety Report 18689305 (Version 14)
Quarter: 2024Q1

REPORT INFORMATION
  Report Type: Report from Study
  Country: CO (occurrence: CO)
  Receive Date: 20201231
  Receipt Date: 20240115
  Transmission Date: 20240410
  Serious: Yes (Hospitalization, Other)
  Sender: FDA-Public Use
  Company Number: CO-TAKEDA-2020TUS061421

PATIENT
  Age: 26 Year
  Sex: Female
  Weight: 49 kg

DRUGS (5)
  1. VEDOLIZUMAB [Suspect]
     Active Substance: VEDOLIZUMAB
     Indication: Colitis ulcerative
     Dosage: 300 MILLIGRAM
     Route: 042
     Dates: start: 20201201
  2. MESALAMINE [Suspect]
     Active Substance: MESALAMINE
     Indication: Product used for unknown indication
     Dosage: UNK
     Route: 065
  3. TAKHZYRO [Suspect]
     Active Substance: LANADELUMAB-FLYO
     Indication: Hereditary angioedema
     Dosage: UNK
     Route: 065
  4. FACETIX [Concomitant]
     Indication: Contraception
     Dosage: 2 MILLIGRAM, QD
     Route: 048
     Dates: start: 202006, end: 20210130
  5. GESTAVIT MATERNO [Concomitant]
     Dosage: UNK UNK, QD
     Route: 048

REACTIONS (19)
  - Intestinal obstruction [Recovering/Resolving]
  - Small intestinal obstruction [Unknown]
  - Constipation [Recovered/Resolved]
  - Diarrhoea [Unknown]
  - Diarrhoea haemorrhagic [Unknown]
  - Rectal haemorrhage [Unknown]
  - Abdominal pain [Unknown]
  - Product dose omission issue [Unknown]
  - Inappropriate schedule of product administration [Unknown]
  - Maternal exposure during breast feeding [Unknown]
  - Menstrual disorder [Unknown]
  - Weight increased [Unknown]
  - Malaise [Recovering/Resolving]
  - Respiratory symptom [Recovering/Resolving]
  - Pain [Unknown]
  - Productive cough [Recovering/Resolving]
  - Pregnancy [Recovered/Resolved]
  - Pyrexia [Recovering/Resolving]
  - Headache [Unknown]

NARRATIVE: CASE EVENT DATE: 20201219
